FAERS Safety Report 18344559 (Version 2)
Quarter: 2020Q4

REPORT INFORMATION
  Report Type: Report from Study
  Country: CO (occurrence: CO)
  Receive Date: 20201005
  Receipt Date: 20201120
  Transmission Date: 20210114
  Serious: Yes (Disabling, Other)
  Sender: FDA-Public Use
  Company Number: NVSC2020CO267867

PATIENT
  Age: 32 Year
  Sex: Female
  Weight: 71 kg

DRUGS (9)
  1. INSULIN [Concomitant]
     Active Substance: INSULIN NOS
     Indication: DIABETES MELLITUS
     Dosage: UNK
     Route: 065
  2. LORATADINE. [Suspect]
     Active Substance: LORATADINE
     Indication: PRODUCT USED FOR UNKNOWN INDICATION
     Dosage: 10 MG, QHS
     Route: 065
  3. LEVETIRACETAM. [Concomitant]
     Active Substance: LEVETIRACETAM
     Indication: MYOCLONIC EPILEPSY AND RAGGED-RED FIBRES
     Dosage: 2000 MG, Q12H, STARTED MORE THAN 3 YEARS AGO.
     Route: 065
  4. XOLAIR [Suspect]
     Active Substance: OMALIZUMAB
     Indication: URTICARIA
     Dosage: 300 MG, QMO
     Route: 058
     Dates: start: 20200721
  5. OXYCODONE HYDROCHLORIDE. [Suspect]
     Active Substance: OXYCODONE HYDROCHLORIDE
     Indication: PRODUCT USED FOR UNKNOWN INDICATION
     Dosage: 20 MG, Q8H
     Route: 065
  6. OXYCODONE [Concomitant]
     Active Substance: OXYCODONE
     Indication: PAIN
     Dosage: 20 MG, Q8H, EVERY 8 HOURS.
     Route: 065
  7. CLONAZEPAM. [Concomitant]
     Active Substance: CLONAZEPAM
     Indication: MYOCLONIC EPILEPSY AND RAGGED-RED FIBRES
     Dosage: 2 MG, Q12H
     Route: 048
  8. PREDNISOLONE. [Concomitant]
     Active Substance: PREDNISOLONE
     Indication: URTICARIA
     Dosage: UNK UNK, BID, (IN THE MORNING AND IN THE EVENING)
     Route: 048
  9. LACOSAMIDE. [Concomitant]
     Active Substance: LACOSAMIDE
     Indication: MYOCLONIC EPILEPSY AND RAGGED-RED FIBRES
     Dosage: 200 MG, Q12H
     Route: 048

REACTIONS (8)
  - Infection [Unknown]
  - Seizure [Not Recovered/Not Resolved]
  - Tachycardia [Unknown]
  - Visual impairment [Unknown]
  - Blindness [Unknown]
  - Somnolence [Not Recovered/Not Resolved]
  - Headache [Unknown]
  - Asthenia [Unknown]

NARRATIVE: CASE EVENT DATE: 202009
